FAERS Safety Report 7813643-X (Version None)
Quarter: 2011Q4

REPORT INFORMATION
  Report Type: 
  Country: None (occurrence: None)
  Receive Date: 20111014
  Receipt Date: 20090424
  Transmission Date: 20120403
  Serious: No
  Sender: FDA-Public Use
  Company Number: 2009BI012768

PATIENT
  Sex: Male

DRUGS (1)
  1. TYSABRI [Suspect]
     Indication: MULTIPLE SCLEROSIS
     Route: 042
     Dates: start: 20081022

REACTIONS (5)
  - ABDOMINAL DISCOMFORT [None]
  - MULTIPLE SCLEROSIS [None]
  - BALANCE DISORDER [None]
  - DIZZINESS [None]
  - HYPERSENSITIVITY [None]
